FAERS Safety Report 4489968-5 (Version None)
Quarter: 2004Q4

REPORT INFORMATION
  Report Type: 
  Country: None (occurrence: None)
  Receive Date: 20041101
  Receipt Date: 20041021
  Transmission Date: 20050328
  Serious: Yes (Other)
  Sender: FDA-Public Use
  Company Number: GB-GLAXOSMITHKLINE-B0349166A

PATIENT
  Age: 60 Year
  Sex: Male
  Weight: 88 kg

DRUGS (7)
  1. ZYBAN [Suspect]
     Dosage: 150MG TWICE PER DAY
     Route: 048
     Dates: start: 20040923, end: 20040930
  2. NEXIUM [Concomitant]
     Indication: DEPRESSION
     Dosage: 20MG PER DAY
     Route: 048
     Dates: start: 20011210
  3. DOXAZOSIN [Concomitant]
     Indication: BLOOD PRESSURE
     Dosage: 4MG PER DAY
     Route: 048
     Dates: start: 19980704
  4. AMLODIPINE [Concomitant]
     Indication: BLOOD PRESSURE
     Dosage: 10MG PER DAY
     Route: 048
     Dates: start: 20040713
  5. BENDROFLUMETHIAZIDE [Concomitant]
     Indication: BLOOD PRESSURE
     Route: 065
     Dates: start: 19980404
  6. BECLOMETHASONE DIPROPIONATE [Concomitant]
  7. VENTOLIN [Concomitant]

REACTIONS (3)
  - ANGIONEUROTIC OEDEMA [None]
  - HEAD DISCOMFORT [None]
  - SWOLLEN TONGUE [None]
